FAERS Safety Report 24777301 (Version 3)
Quarter: 2025Q1

REPORT INFORMATION
  Report Type: Report from Study
  Country: US (occurrence: US)
  Receive Date: 20241226
  Receipt Date: 20250206
  Transmission Date: 20250408
  Serious: Yes (Hospitalization, Other)
  Sender: TAKEDA
  Company Number: US-TAKEDA-2024TUS049094

PATIENT
  Age: 24 Year
  Sex: Female

DRUGS (3)
  1. VEDOLIZUMAB [Suspect]
     Active Substance: VEDOLIZUMAB
     Indication: Colitis ulcerative
  2. VEDOLIZUMAB [Suspect]
     Active Substance: VEDOLIZUMAB
     Indication: Colitis ulcerative
     Dosage: 108 MILLIGRAM, Q2WEEKS
     Dates: start: 20240516
  3. VEDOLIZUMAB [Suspect]
     Active Substance: VEDOLIZUMAB
     Dosage: 108 MILLIGRAM, Q2WEEKS
     Dates: start: 202406

REACTIONS (7)
  - Sepsis [Recovered/Resolved]
  - Injection site extravasation [Recovered/Resolved]
  - Device leakage [Recovered/Resolved]
  - Inappropriate schedule of product administration [Not Recovered/Not Resolved]
  - Product dose omission issue [Unknown]
  - Infection [Unknown]
  - Nasopharyngitis [Recovered/Resolved]

NARRATIVE: CASE EVENT DATE: 20240514
